FAERS Safety Report 7512245-2 (Version None)
Quarter: 2011Q2

REPORT INFORMATION
  Report Type: 
  Country: None (occurrence: None)
  Receive Date: 20110531
  Receipt Date: 20110516
  Transmission Date: 20111010
  Serious: Yes (Death)
  Sender: FDA-Public Use
  Company Number: JP-ACTELION-A-CH2011-47804

PATIENT
  Sex: Female
  Weight: 40 kg

DRUGS (14)
  1. ALFACALCIDOL [Concomitant]
  2. CYCLOPHOSPHAMIDE [Concomitant]
  3. RANITIDINE A [Concomitant]
  4. OXYGEN [Concomitant]
  5. PREDNISOLONE [Concomitant]
  6. CARVEDILOL [Concomitant]
  7. AMLODIPINE BESYLATE [Concomitant]
  8. TRACLEER [Suspect]
     Indication: PULMONARY HYPERTENSION
     Dosage: 62.5 MG, BID
     Route: 048
     Dates: start: 20080417, end: 20080527
  9. ZOPICLONE [Concomitant]
  10. FUROSEMIDE [Concomitant]
  11. DIHYDROCODEINE PHOSPHATE [Concomitant]
  12. GLICLAZIDE [Concomitant]
  13. FEXOFENADINE HCL [Concomitant]
  14. MAGNESIUM OXIDE [Concomitant]

REACTIONS (1)
  - CARDIAC FAILURE [None]
